FAERS Safety Report 21394801 (Version 1)
Quarter: 2022Q3

REPORT INFORMATION
  Report Type: Spontaneous
  Country: US (occurrence: US)
  Receive Date: 20220930
  Receipt Date: 20220930
  Transmission Date: 20221027
  Serious: No
  Sender: FDA-Public Use
  Company Number: US-BIOGEN-2022BI01157886

PATIENT
  Sex: Female
  Weight: 54.934 kg

DRUGS (4)
  1. TECFIDERA [Suspect]
     Active Substance: DIMETHYL FUMARATE
     Indication: Multiple sclerosis
     Dosage: STARTING DOSE
     Route: 050
     Dates: start: 201802
  2. TECFIDERA [Suspect]
     Active Substance: DIMETHYL FUMARATE
     Dosage: MAINTENANCE DOSE
     Route: 050
  3. TECFIDERA [Suspect]
     Active Substance: DIMETHYL FUMARATE
     Dosage: 240 MG Q AM
     Route: 050
  4. TECFIDERA [Suspect]
     Active Substance: DIMETHYL FUMARATE
     Dosage: 240 MG Q AM AND 120MG AT 3PM
     Route: 050

REACTIONS (13)
  - Abdominal discomfort [Unknown]
  - Nocturia [Unknown]
  - COVID-19 [Unknown]
  - Hypoaesthesia [Unknown]
  - Memory impairment [Unknown]
  - Temperature intolerance [Unknown]
  - Blood glucose increased [Unknown]
  - Dizziness [Recovered/Resolved]
  - Blood glucose decreased [Recovered/Resolved]
  - Red blood cell count decreased [Recovered/Resolved]
  - Haematocrit decreased [Recovered/Resolved]
  - Flushing [Unknown]
  - Blood bilirubin increased [Unknown]

NARRATIVE: CASE EVENT DATE: 20220101
